FAERS Safety Report 14237172 (Version 1)
Quarter: 2017Q4

REPORT INFORMATION
  Report Type: Spontaneous
  Country: CZ (occurrence: CZ)
  Receive Date: 20171129
  Receipt Date: 20171129
  Transmission Date: 20180321
  Serious: Yes (Life-Threatening)
  Sender: FDA-Public Use
  Company Number: CZ-FRESENIUS KABI-FK201710190

PATIENT
  Age: 81 Year
  Sex: Female

DRUGS (6)
  1. CEFTRIAXON (MANUFACTURER UNKNOWN) [Suspect]
     Active Substance: CEFTRIAXONE
     Indication: TRACHEOBRONCHITIS
     Route: 065
  2. OXACILLIN [Suspect]
     Active Substance: OXACILLIN SODIUM
     Indication: TRACHEOBRONCHITIS
     Route: 065
  3. VALPROATE [Suspect]
     Active Substance: VALPROIC ACID
     Indication: EPILEPSY
     Route: 065
  4. PHENYTOIN (MANUFACTURER UNKNOWN) [Suspect]
     Active Substance: PHENYTOIN
     Indication: EPILEPSY
     Route: 065
  5. CEFTRIAXON (MANUFACTURER UNKNOWN) [Suspect]
     Active Substance: CEFTRIAXONE
     Indication: SEPSIS
  6. OXACILLIN [Suspect]
     Active Substance: OXACILLIN SODIUM
     Indication: SEPSIS

REACTIONS (1)
  - Toxic epidermal necrolysis [Recovering/Resolving]
